FAERS Safety Report 14177661 (Version 2)
Quarter: 2017Q4

REPORT INFORMATION
  Report Type: Spontaneous
  Country: IT (occurrence: IT)
  Receive Date: 20171110
  Receipt Date: 20171123
  Transmission Date: 20180321
  Serious: Yes (Other)
  Sender: FDA-Public Use
  Company Number: IT-ROCHE-2020885

PATIENT
  Age: 54 Year
  Sex: Male

DRUGS (6)
  1. LEVOPRAID (LEVOSULPIRIDE) [Interacting]
     Active Substance: LEVOSULPIRIDE
     Indication: DEPRESSION
     Dosage: 25 MG TABLETS 20 TABLETS
     Route: 048
     Dates: start: 20140311, end: 20170311
  2. LEVOPRAID (LEVOSULPIRIDE) [Interacting]
     Active Substance: LEVOSULPIRIDE
     Indication: ANXIETY
  3. RIVOTRIL [Suspect]
     Active Substance: CLONAZEPAM
     Indication: PRODUCT USED FOR UNKNOWN INDICATION
     Dosage: 2.5MG/ML ORAL DROPS, SOLUTION 10 ML VIAL
     Route: 048
     Dates: start: 20170310, end: 20170311
  4. PRAMIPEXOLE HYDROCHLORIDE MONOHYDRATE [Interacting]
     Active Substance: PRAMIPEXOLE
     Route: 048
     Dates: start: 20170311, end: 20170311
  5. CARDIOASPIRIN [Concomitant]
     Active Substance: ASPIRIN
     Dosage: 100 MG GASTRO-RESISTANT TABLETS 30 TABLETS
     Route: 065
  6. PRAMIPEXOLE HYDROCHLORIDE MONOHYDRATE [Interacting]
     Active Substance: PRAMIPEXOLE
     Indication: RESTLESS LEGS SYNDROME
     Route: 048
     Dates: start: 20161111, end: 20170311

REACTIONS (4)
  - Hallucination [Recovering/Resolving]
  - Drug interaction [Unknown]
  - Confusional state [Recovering/Resolving]
  - Restless legs syndrome [Recovering/Resolving]

NARRATIVE: CASE EVENT DATE: 20170311
